FAERS Safety Report 4354749-X (Version None)
Quarter: 2004Q2

REPORT INFORMATION
  Report Type: 
  Country: None (occurrence: None)
  Receive Date: 20040504
  Receipt Date: 20040421
  Transmission Date: 20050107
  Serious: Yes (Other)
  Sender: FDA-Public Use
  Company Number: 2004-BP-03083BP

PATIENT
  Age: 55 Year
  Sex: Male

DRUGS (7)
  1. MICARDIS [Suspect]
     Indication: MYOCARDIAL INFARCTION
     Dosage: NR (NR)PO
     Route: 048
     Dates: start: 20030422
  2. MICARDIS [Suspect]
     Indication: PROPHYLAXIS
     Dosage: NR (NR)PO
     Route: 048
     Dates: start: 20030422
  3. RAMIPRIL [Suspect]
     Indication: CEREBROVASCULAR ACCIDENT
     Dosage: NR (NR); PO
     Route: 048
     Dates: start: 20030402
  4. RAMIPRIL [Suspect]
     Indication: MYOCARDIAL INFARCTION
     Dosage: NR (NR); PO
     Route: 048
     Dates: start: 20030402
  5. NITRATE (NR) [Suspect]
     Dosage: NR (NR) NR
  6. ASPIRIN [Suspect]
     Dosage: NR (NR); NR
  7. STATINE (NR) [Suspect]
     Dosage: NR (NR); NR

REACTIONS (1)
  - PARAPSORIASIS [None]
